FAERS Safety Report 18092863 (Version 1)
Quarter: 2020Q3

REPORT INFORMATION
  Report Type: Spontaneous
  Country: US (occurrence: US)
  Receive Date: 20200730
  Receipt Date: 20200730
  Transmission Date: 20201103
  Serious: Yes (Other)
  Sender: FDA-Public Use
  Company Number: US-ROCHE-2645882

PATIENT
  Sex: Female

DRUGS (9)
  1. METRONIDAZOLE. [Concomitant]
     Active Substance: METRONIDAZOLE
     Dosage: TAKE 1 TABLET 3 TIMES DAILY
     Route: 048
  2. LEVOTHYROXINE SODIUM. [Concomitant]
     Active Substance: LEVOTHYROXINE SODIUM
     Dosage: 100 MCG TAB, TAKE 1 TABLET EVERY DAY
     Route: 048
  3. OMEPRAZOLE. [Concomitant]
     Active Substance: OMEPRAZOLE
     Dosage: TAKE 1 CAPSULE DAILY
     Route: 048
  4. CIPROFLOXACIN HCL [Concomitant]
     Active Substance: CIPROFLOXACIN HYDROCHLORIDE
     Dosage: TAKE 1 TABLET EVERY 12 HOURS DAILY
     Route: 048
  5. MOMETASONE FUROATE. [Concomitant]
     Active Substance: MOMETASONE FUROATE
  6. ANASTROZOLE. [Concomitant]
     Active Substance: ANASTROZOLE
     Dosage: TAKE 1 TABLET DAILY
     Route: 048
  7. FLUOXETINE HCL [Concomitant]
     Active Substance: FLUOXETINE HYDROCHLORIDE
     Dosage: TAKE 3 CAPSULE EVERY DAY
     Route: 048
  8. HERCEPTIN [Suspect]
     Active Substance: TRASTUZUMAB
     Indication: ABDOMINAL PAIN
     Route: 065
  9. LORAZEPAM. [Concomitant]
     Active Substance: LORAZEPAM
     Dosage: TAKE 1 TABLET EVERY 6 HOURS AS NEEDED
     Route: 048

REACTIONS (9)
  - Rectal haemorrhage [Unknown]
  - Nausea [Unknown]
  - Discomfort [Unknown]
  - Pyrexia [Unknown]
  - Diverticulitis [Unknown]
  - Diarrhoea [Unknown]
  - Infrequent bowel movements [Unknown]
  - Abdominal pain lower [Unknown]
  - Abdominal tenderness [Unknown]
